FAERS Safety Report 21809955 (Version 2)
Quarter: 2023Q1

REPORT INFORMATION
  Report Type: Report from Study
  Country: US (occurrence: US)
  Receive Date: 20230103
  Receipt Date: 20230328
  Transmission Date: 20230417
  Serious: No
  Sender: FDA-Public Use
  Company Number: US-ABBVIE-4212598

PATIENT
  Sex: Female
  Weight: 54 kg

DRUGS (1)
  1. RINVOQ [Suspect]
     Active Substance: UPADACITINIB
     Indication: Psoriasis
     Route: 048
     Dates: start: 20221018

REACTIONS (3)
  - Confusional state [Unknown]
  - Pain [Unknown]
  - Constipation [Not Recovered/Not Resolved]
